FAERS Safety Report 17037033 (Version 3)
Quarter: 2021Q1

REPORT INFORMATION
  Report Type: Spontaneous
  Country: US (occurrence: US)
  Receive Date: 20191115
  Receipt Date: 20210216
  Transmission Date: 20210419
  Serious: No
  Sender: FDA-Public Use
  Company Number: US-PFIZER INC-2019489578

PATIENT
  Age: 73 Year
  Sex: Female
  Weight: 74 kg

DRUGS (3)
  1. ESTRING [Suspect]
     Active Substance: ESTRADIOL
     Indication: ATROPHIC VULVOVAGINITIS
     Dosage: 0.5 G (Q.H.S (EVERY NIGHT AT BEDTIME)X 10 NIGHTS THEN 3 TIMES WEEKLY)
     Route: 067
  2. ESTRING [Suspect]
     Active Substance: ESTRADIOL
     Indication: VULVITIS
     Dosage: 2 MG, EVERY 3 MONTHS [SIG: INSERT 1 RING VAGINALLY EVERY 90 DAYS]
     Route: 067
  3. ESTRING [Suspect]
     Active Substance: ESTRADIOL
     Indication: MIXED INCONTINENCE

REACTIONS (7)
  - Epistaxis [Unknown]
  - Pruritus [Unknown]
  - Nasal congestion [Unknown]
  - Sleep disorder [Unknown]
  - Vaginal discharge [Unknown]
  - Vulvovaginal dryness [Unknown]
  - Vulvovaginal pruritus [Unknown]
